FAERS Safety Report 11545031 (Version 1)
Quarter: 2015Q3

REPORT INFORMATION
  Report Type: Report from Study
  Country: DE (occurrence: DE)
  Receive Date: 20150924
  Receipt Date: 20150924
  Transmission Date: 20151125
  Serious: Yes (Hospitalization)
  Sender: FDA-Public Use
  Company Number: DE-BIOGENIDEC-2015BI126716

PATIENT
  Age: 29 Year
  Sex: Female

DRUGS (2)
  1. IMMUNOGLOBULINS [Concomitant]
     Active Substance: HUMAN IMMUNOGLOBULIN G
     Route: 042
     Dates: start: 20150529
  2. TYSABRI [Suspect]
     Active Substance: NATALIZUMAB
     Indication: RELAPSING-REMITTING MULTIPLE SCLEROSIS
     Route: 042
     Dates: start: 20131223, end: 20150420

REACTIONS (5)
  - Laceration [Recovered/Resolved with Sequelae]
  - Tibia fracture [Recovered/Resolved with Sequelae]
  - Ligament rupture [Recovered/Resolved with Sequelae]
  - Road traffic accident [Recovered/Resolved with Sequelae]
  - Subarachnoid haemorrhage [Recovered/Resolved with Sequelae]

NARRATIVE: CASE EVENT DATE: 20150818
